FAERS Safety Report 5035358-6 (Version None)
Quarter: 2006Q2

REPORT INFORMATION
  Report Type: 
  Country: None (occurrence: None)
  Receive Date: 20060627
  Receipt Date: 20060508
  Transmission Date: 20061013
  Serious: Yes (Other)
  Sender: FDA-Public Use
  Company Number: MX-AVENTIS-200615002GDDC

PATIENT
  Age: 32 Year
  Sex: Female

DRUGS (3)
  1. ARAVA [Suspect]
     Indication: MIXED CONNECTIVE TISSUE DISEASE
     Route: 048
     Dates: start: 20030101, end: 20051101
  2. DEFLAZACORT [Suspect]
     Indication: MIXED CONNECTIVE TISSUE DISEASE
     Route: 048
     Dates: start: 19980101
  3. CHLOROQUINE PHOSPHATE [Concomitant]
     Dosage: DOSE: UNK
     Dates: end: 20051001

REACTIONS (14)
  - ALOPECIA [None]
  - CAESAREAN SECTION [None]
  - CEREBRAL VENTRICLE DILATATION [None]
  - DRUG EXPOSURE DURING PREGNANCY [None]
  - ERYTHEMA [None]
  - LEUKOPENIA [None]
  - LYMPHOPENIA [None]
  - MOUTH ULCERATION [None]
  - POLYMYOSITIS [None]
  - PRE-ECLAMPSIA [None]
  - PREGNANCY [None]
  - REFUSAL OF TREATMENT BY PATIENT [None]
  - SJOGREN'S SYNDROME [None]
  - ULTRASOUND ANTENATAL SCREEN ABNORMAL [None]
